FAERS Safety Report 19432916 (Version 3)
Quarter: 2021Q3

REPORT INFORMATION
  Report Type: Spontaneous
  Country: US (occurrence: US)
  Receive Date: 20210618
  Receipt Date: 20210708
  Transmission Date: 20211014
  Serious: Yes (Other)
  Sender: FDA-Public Use
  Company Number: US-SA-2021SA199265

PATIENT
  Sex: Female

DRUGS (1)
  1. AUBAGIO [Suspect]
     Active Substance: TERIFLUNOMIDE
     Route: 065

REACTIONS (15)
  - Unevaluable event [Unknown]
  - Menstruation delayed [Unknown]
  - Memory impairment [Unknown]
  - Heavy menstrual bleeding [Unknown]
  - Muscular weakness [Unknown]
  - Myalgia [Unknown]
  - Postmenopausal haemorrhage [Unknown]
  - Pain [Unknown]
  - Amnesia [Unknown]
  - Dysarthria [Unknown]
  - Menstrual disorder [Unknown]
  - Influenza [Unknown]
  - Hypoaesthesia [Unknown]
  - Multiple sclerosis relapse [Unknown]
  - Visual impairment [Unknown]
